FAERS Safety Report 18397409 (Version 1)
Quarter: 2020Q4

REPORT INFORMATION
  Report Type: Spontaneous
  Country: US (occurrence: US)
  Receive Date: 20201017
  Receipt Date: 20201017
  Transmission Date: 20210114
  Serious: Yes (Other)
  Sender: FDA-Public Use
  Company Number: None

PATIENT
  Sex: Female

DRUGS (1)
  1. FUROSEMIDE. [Suspect]
     Active Substance: FUROSEMIDE
     Dates: start: 20190122, end: 20201017

REACTIONS (2)
  - Urticaria [None]
  - Deafness [None]

NARRATIVE: CASE EVENT DATE: 20201007
